FAERS Safety Report 21104999 (Version 1)
Quarter: 2022Q3

REPORT INFORMATION
  Report Type: Spontaneous
  Country: CA (occurrence: CA)
  Receive Date: 20220720
  Receipt Date: 20220720
  Transmission Date: 20221027
  Serious: Yes (Other)
  Sender: FDA-Public Use
  Company Number: None

PATIENT
  Age: 98 Year
  Sex: Male

DRUGS (15)
  1. AMLODIPINE BESYLATE [Suspect]
     Active Substance: AMLODIPINE BESYLATE
     Indication: Product used for unknown indication
  2. ACETAMINOPHEN [Concomitant]
     Active Substance: ACETAMINOPHEN
     Dosage: 3 EVERY 1 DAYS
  3. AMLODIPINE [Concomitant]
     Active Substance: AMLODIPINE BESYLATE
     Dosage: EVERY 1 DAYS
  4. CALCIUM [Concomitant]
     Active Substance: CALCIUM
     Dosage: 2 EVERY 1 DAYS
  5. CLOBETASOL [Concomitant]
     Active Substance: CLOBETASOL
     Dosage: AS REQUIRED
  6. PERINDOPRIL [Concomitant]
     Active Substance: PERINDOPRIL
     Dosage: EVERY 1 DAYS
  7. ELIQUIS [Concomitant]
     Active Substance: APIXABAN
     Dosage: 2 EVERY 1 DAYS
  8. INFLUENZA VIRUS VACCINE [Concomitant]
     Active Substance: INFLUENZA VIRUS VACCINE
  9. LASIX [Concomitant]
     Active Substance: FUROSEMIDE
     Dosage: 2 EVERY 1 DAYS
  10. METOPROLOL TARTRATE [Concomitant]
     Active Substance: METOPROLOL TARTRATE
     Dosage: 2 EVERY 1 DAYS
  11. CICLESONIDE [Concomitant]
     Active Substance: CICLESONIDE
     Dosage: SPRAY, METERED DOSE
  12. RISEDRONATE SODIUM [Concomitant]
     Active Substance: RISEDRONATE SODIUM
     Dosage: 1 EVERY 1 WEEKS
  13. TIMOLOL MALEATE [Concomitant]
     Active Substance: TIMOLOL MALEATE
  14. VITAMIN D3 [Concomitant]
     Active Substance: CHOLECALCIFEROL
     Dosage: EVERY 1 DAYS
  15. VITAMIN D3 [Concomitant]
     Active Substance: CHOLECALCIFEROL
     Dosage: EVERY 1 DAYS

REACTIONS (13)
  - Aortic valve incompetence [Unknown]
  - Atrial fibrillation [Unknown]
  - Bronchitis [Unknown]
  - Glaucoma [Unknown]
  - Heart rate decreased [Unknown]
  - Hypertension [Unknown]
  - Mitral valve incompetence [Unknown]
  - Osteoporosis [Unknown]
  - Palpitations [Unknown]
  - Peripheral arterial occlusive disease [Unknown]
  - Pneumonia [Unknown]
  - Upper respiratory tract infection [Unknown]
  - Weight decreased [Unknown]
